FAERS Safety Report 16659890 (Version 1)
Quarter: 2019Q3

REPORT INFORMATION
  Report Type: Spontaneous
  Country: FR (occurrence: FR)
  Receive Date: 20190802
  Receipt Date: 20190802
  Transmission Date: 20191004
  Serious: Yes (Hospitalization)
  Sender: FDA-Public Use
  Company Number: FR-TEVA-2019-FR-1086012

PATIENT
  Age: 30 Year
  Sex: Male

DRUGS (2)
  1. TRANXENE [Suspect]
     Active Substance: CLORAZEPATE DIPOTASSIUM
  2. BUPRENORPHINE. [Suspect]
     Active Substance: BUPRENORPHINE
     Route: 065

REACTIONS (4)
  - Intentional product misuse [Recovering/Resolving]
  - Drug abuse [Recovering/Resolving]
  - Coma [Recovering/Resolving]
  - Pneumonia aspiration [Recovered/Resolved]
